FAERS Safety Report 8331342-5 (Version None)
Quarter: 2012Q2

REPORT INFORMATION
  Report Type: 
  Country: None (occurrence: None)
  Receive Date: 20120502
  Receipt Date: 20120501
  Transmission Date: 20120825
  Serious: Yes (Death)
  Sender: FDA-Public Use
  Company Number: US-GILEAD-2012-0054097

PATIENT
  Sex: Female

DRUGS (2)
  1. LETAIRIS [Suspect]
     Indication: LIVER TRANSPLANT
     Dosage: 5 MG, UNK
     Route: 048
     Dates: start: 20111206, end: 20120117
  2. LETAIRIS [Suspect]
     Indication: PORTOPULMONARY HYPERTENSION
     Dosage: 10 MG, UNK
     Route: 048
     Dates: start: 20120118, end: 20120420

REACTIONS (5)
  - RENAL FAILURE CHRONIC [None]
  - HEPATIC CIRRHOSIS [None]
  - HYPOTENSION [None]
  - HYPOPERFUSION [None]
  - MULTI-ORGAN FAILURE [None]
